FAERS Safety Report 9486737 (Version 4)
Quarter: 2013Q4

REPORT INFORMATION
  Report Type: Report from Study
  Country: SG (occurrence: SG)
  Receive Date: 20130829
  Receipt Date: 20131122
  Transmission Date: 20140711
  Serious: Yes (Hospitalization)
  Sender: FDA-Public Use
  Company Number: SG-PFIZER INC-2013124115

PATIENT
  Age: 68 Year
  Sex: Female
  Weight: 40.4 kg

DRUGS (7)
  1. CRIZOTINIB [Suspect]
     Indication: NON-SMALL CELL LUNG CANCER
     Dosage: 250 MG, 2X/DAY
     Route: 048
     Dates: start: 20120827, end: 20130719
  2. LOPERAMIDE [Concomitant]
     Indication: DIARRHOEA
     Dosage: 4 MG, 3X/DAY
     Route: 048
     Dates: start: 20121010
  3. CETAPHIL [Concomitant]
     Indication: RASH
     Dosage: 1 DF, 1X/DAY
     Route: 061
     Dates: start: 20130304
  4. BETAMETHASONE [Concomitant]
     Indication: RASH
     Dosage: 1 DF, 2X/DAY
     Route: 061
     Dates: start: 20130304
  5. QV CREAM [Concomitant]
     Indication: RASH
     Dosage: 1 DF, 2X/DAY
     Route: 061
     Dates: start: 20130304
  6. CHLORPHENAMINE [Concomitant]
     Indication: RASH
     Dosage: 4 MG, 2X/DAY
     Route: 048
     Dates: start: 20130407
  7. METOCLOPRAMIDE HYDROCHLORIDE [Concomitant]
     Indication: NAUSEA
     Dosage: 10 MG, 2X/DAY
     Route: 048
     Dates: start: 20130407

REACTIONS (1)
  - Renal cyst [Recovering/Resolving]
